FAERS Safety Report 5059240-3 (Version None)
Quarter: 2006Q3

REPORT INFORMATION
  Report Type: 
  Country: None (occurrence: None)
  Receive Date: 20060718
  Receipt Date: 20060712
  Transmission Date: 20061208
  Serious: Yes (Other)
  Sender: FDA-Public Use
  Company Number: 060713-0000677

PATIENT
  Age: 4 Year
  Sex: Female

DRUGS (8)
  1. DACTINOMYCIN [Suspect]
     Indication: LUNG NEOPLASM
     Dosage: 0.45 MG/KG
  2. CISPLATIN [Suspect]
     Indication: LUNG NEOPLASM
     Dosage: 525 MG/M**2
  3. DOXORUBICIN HCL [Suspect]
     Indication: LUNG NEOPLASM
     Dosage: SEE IMAGE
  4. CYCLOPHOSPHAMIDE [Suspect]
     Indication: LUNG NEOPLASM
     Dosage: SEE IMAGE
  5. VINCRISTINE [Suspect]
     Indication: LUNG NEOPLASM
     Dosage: 2400 MG/M**2
  6. THIOTEPA [Suspect]
     Indication: LUNG NEOPLASM
     Dosage: SEE IMAGE
  7. THIOTEPA [Suspect]
     Indication: LUNG NEOPLASM
     Dosage: SEE IMAGE
  8. TOPOTECAN (TOPOTECAN) [Suspect]
     Indication: LUNG NEOPLASM
     Dosage: 0.75 MG/M**2

REACTIONS (6)
  - ASTHENIA [None]
  - MALIGNANT NEOPLASM OF THORAX [None]
  - MULTIPLE SCLEROSIS [None]
  - OPTIC NEURITIS [None]
  - RECURRENT CANCER [None]
  - STEM CELL TRANSPLANT [None]
